FAERS Safety Report 7018760-2 (Version None)
Quarter: 2010Q3

REPORT INFORMATION
  Report Type: 
  Country: None (occurrence: None)
  Receive Date: 20100928
  Receipt Date: 20100916
  Transmission Date: 20110219
  Serious: Yes (Other)
  Sender: FDA-Public Use
  Company Number: FR-BAYER-201039951GPV

PATIENT
  Sex: Female

DRUGS (1)
  1. ULTRAVIST 370 [Suspect]
     Indication: COMPUTERISED TOMOGRAM THORAX
     Route: 065

REACTIONS (4)
  - OEDEMA [None]
  - RESPIRATORY DISORDER [None]
  - SPEECH DISORDER [None]
  - TONGUE DISORDER [None]
